FAERS Safety Report 21303245 (Version 1)
Quarter: 2022Q3

REPORT INFORMATION
  Report Type: Spontaneous
  Country: FR (occurrence: FR)
  Receive Date: 20220907
  Receipt Date: 20220907
  Transmission Date: 20221027
  Serious: Yes (Hospitalization)
  Sender: FDA-Public Use
  Company Number: None

PATIENT
  Age: 86 Year
  Sex: Male

DRUGS (3)
  1. VANCOMYCIN [Suspect]
     Active Substance: VANCOMYCIN
     Indication: Superinfection bacterial
     Dosage: 2 G
     Route: 042
     Dates: start: 20220519, end: 20220608
  2. CIPROFLOXACIN [Suspect]
     Active Substance: CIPROFLOXACIN
     Indication: Superinfection bacterial
     Dosage: 750 MG, Q12H
     Route: 048
     Dates: start: 20220519, end: 20220608
  3. RIFAMPIN [Suspect]
     Active Substance: RIFAMPIN
     Indication: Superinfection bacterial
     Dosage: 600 MG, Q12H
     Route: 048
     Dates: start: 20220519, end: 20220608

REACTIONS (1)
  - Haemolytic anaemia [Unknown]

NARRATIVE: CASE EVENT DATE: 20220608
